FAERS Safety Report 9338194 (Version 2)
Quarter: 2013Q3

REPORT INFORMATION
  Report Type: Report from Study
  Country: AT (occurrence: AT)
  Receive Date: 20130610
  Receipt Date: 20130930
  Transmission Date: 20140515
  Serious: Yes (Death)
  Sender: FDA-Public Use
  Company Number: AT-ROCHE-1232697

PATIENT
  Age: 73 Year
  Sex: Male
  Weight: 86.6 kg

DRUGS (19)
  1. VISMODEGIB [Suspect]
     Indication: HEAD AND NECK CANCER
     Route: 048
     Dates: start: 20120518
  2. NATRIUM BICARBONATE [Concomitant]
     Indication: HYPONATRAEMIA
     Route: 065
     Dates: start: 20120611, end: 20120917
  3. AMLODIPIN [Concomitant]
     Indication: HYPERTENSION
     Route: 065
     Dates: start: 20121015
  4. PROGRAF [Concomitant]
     Indication: RENAL TRANSPLANT
     Route: 065
     Dates: start: 199701
  5. MYFORTIC [Concomitant]
     Indication: RENAL TRANSPLANT
     Route: 065
     Dates: start: 201001
  6. NORVASC [Concomitant]
     Indication: HYPERTENSION
     Route: 065
     Dates: start: 201001
  7. DIOVAN [Concomitant]
     Indication: HYPERTENSION
     Route: 065
     Dates: start: 201001
  8. FERROGRADUMET [Concomitant]
     Indication: ANAEMIA
     Route: 065
     Dates: start: 20120511, end: 20120720
  9. LASIX [Concomitant]
     Indication: HYPERTENSION
     Route: 065
     Dates: start: 20120511, end: 20120528
  10. SPIRONO [Concomitant]
     Indication: HYPERTENSION
     Route: 065
     Dates: start: 20120511, end: 20120528
  11. ARANESP [Concomitant]
     Indication: ANAEMIA
     Route: 065
     Dates: start: 200501, end: 20120720
  12. NOVALGIN [Concomitant]
     Indication: ARTHRITIS
     Dosage: DOSE: 2X20 DROPS DAILY
     Route: 065
     Dates: start: 20120708, end: 20120713
  13. KLACID (GERMANY) [Concomitant]
     Route: 065
     Dates: start: 20121020, end: 20121107
  14. MAXIPIME [Concomitant]
     Route: 065
     Dates: start: 20121020, end: 20121107
  15. TAZONAM [Concomitant]
     Route: 065
     Dates: start: 20121020, end: 20121107
  16. OCTAPLAS [Concomitant]
     Route: 065
     Dates: start: 20121102, end: 20121102
  17. THYREX [Concomitant]
     Indication: HYPOTHYROIDISM
     Route: 065
     Dates: start: 20120701, end: 20120902
  18. THYREX [Concomitant]
     Dosage: 20 DROPS TWICE
     Route: 065
     Dates: start: 20120708, end: 20120713
  19. THYREX [Concomitant]
     Route: 065
     Dates: start: 20120903

REACTIONS (1)
  - Pneumonia [Fatal]
